FAERS Safety Report 4959080-7 (Version None)
Quarter: 2006Q1

REPORT INFORMATION
  Report Type: 
  Country: None (occurrence: None)
  Receive Date: 20060331
  Receipt Date: 20060324
  Transmission Date: 20060701
  Serious: Yes (Hospitalization, Other)
  Sender: FDA-Public Use
  Company Number: GB-JNJFOC-20060306606

PATIENT
  Sex: Female
  Weight: 70 kg

DRUGS (12)
  1. REMICADE [Suspect]
     Indication: RHEUMATOID ARTHRITIS
     Route: 042
  2. METHOTREXATE [Concomitant]
     Route: 065
  3. PREDNISOLONE [Concomitant]
     Route: 065
  4. CO-DYDRAMOL [Concomitant]
     Route: 065
  5. CO-DYDRAMOL [Concomitant]
     Route: 065
  6. HRT [Concomitant]
     Route: 065
  7. PHYLLOCONTIN [Concomitant]
     Route: 065
  8. PIROXICAM [Concomitant]
     Route: 065
  9. SALAZOPYRIN [Concomitant]
     Route: 065
  10. SALBUTAMOL [Concomitant]
     Route: 065
  11. SEREVENT [Concomitant]
     Route: 065
  12. PROCHLORPERAZINE [Concomitant]
     Route: 065

REACTIONS (1)
  - CHONDROCALCINOSIS PYROPHOSPHATE [None]
